FAERS Safety Report 8082427-2 (Version None)
Quarter: 2012Q1

REPORT INFORMATION
  Report Type: 
  Country: None (occurrence: None)
  Receive Date: 20120127
  Receipt Date: 20110218
  Transmission Date: 20120608
  Serious: No
  Sender: FDA-Public Use
  Company Number: US-ABBOTT-11P-163-0706357-00

PATIENT
  Age: 43 Year
  Sex: Female

DRUGS (5)
  1. PREDNISONE TAB [Concomitant]
     Indication: PRODUCT USED FOR UNKNOWN INDICATION
  2. EVOXAC [Concomitant]
     Indication: SJOGREN'S SYNDROME
  3. SYNTHROID [Concomitant]
     Indication: PRODUCT USED FOR UNKNOWN INDICATION
  4. HUMIRA [Suspect]
     Indication: RHEUMATOID ARTHRITIS
     Dates: start: 20110201
  5. VOLTAREN [Concomitant]
     Indication: PRODUCT USED FOR UNKNOWN INDICATION

REACTIONS (3)
  - EAR DISCOMFORT [None]
  - SINUS HEADACHE [None]
  - THROAT IRRITATION [None]
